FAERS Safety Report 5382342-9 (Version None)
Quarter: 2007Q2

REPORT INFORMATION
  Report Type: 
  Country: None (occurrence: None)
  Receive Date: 20070629
  Receipt Date: 20070205
  Transmission Date: 20071010
  Serious: Yes (Hospitalization)
  Sender: FDA-Public Use
  Company Number: US200702001022

PATIENT
  Age: 59 Year
  Sex: Female

DRUGS (4)
  1. HUMULIN 70/30 [Suspect]
     Indication: DIABETES MELLITUS
     Dates: start: 20050101
  2. HUMULIN 70/30 [Suspect]
     Indication: DIABETES MELLITUS
  3. HUMALOG [Suspect]
  4. HUMULIN 70/30 PEN (HUMULIN 70/30 PEN) PEN,DISPOSABLE [Concomitant]

REACTIONS (3)
  - INJECTION SITE PAIN [None]
  - MYOCARDIAL INFARCTION [None]
  - VASCULAR DEMENTIA [None]
